FAERS Safety Report 8429149-3 (Version None)
Quarter: 2012Q2

REPORT INFORMATION
  Report Type: 
  Country: None (occurrence: None)
  Receive Date: 20120612
  Receipt Date: 20120604
  Transmission Date: 20120825
  Serious: Yes (Hospitalization, Other)
  Sender: FDA-Public Use
  Company Number: US-BAYER-2012-037927

PATIENT
  Age: 38 Year
  Sex: Female
  Weight: 72.562 kg

DRUGS (26)
  1. DULERA [Concomitant]
     Dosage: 200-5 MCG
     Dates: start: 20111228
  2. PREDNISONE [Concomitant]
     Dosage: 20 MG, UNK
     Dates: start: 20120112
  3. AUGMENTIN [Concomitant]
     Indication: ACUTE SINUSITIS
  4. BENADRYL [Concomitant]
  5. YAZ [Suspect]
     Indication: PREMENSTRUAL SYNDROME
  6. AUGMENTIN [Concomitant]
     Indication: BRONCHITIS
  7. DROSPIRENONE AND ETHINYL ESTRADIOL [Suspect]
     Indication: ACNE
     Dosage: UNK
     Dates: start: 20090115
  8. PHENAZOPYRIDINE HCL TAB [Concomitant]
     Dosage: 200 MG, UNK
     Dates: start: 20111020
  9. AZITHROMYCIN [Concomitant]
     Dosage: 250 MG, UNK
     Dates: start: 20120112
  10. DROSPIRENONE AND ETHINYL ESTRADIOL [Suspect]
     Indication: CONTRACEPTION
  11. YAZ [Suspect]
     Indication: ACNE
     Dosage: UNK
     Dates: start: 20071201, end: 20100201
  12. DROSPIRENONE AND ETHINYL ESTRADIOL [Suspect]
     Indication: CONTRACEPTION
     Dosage: UNK
     Dates: end: 20100201
  13. CIPROFLOXACIN HCL [Concomitant]
     Dosage: 500 MG, UNK
     Dates: start: 20111020
  14. HYDROCODONE BITARTRATE + ACETAMINOPHEN [Concomitant]
     Dosage: 5 MG/500 MG
     Dates: start: 20111020
  15. FLUTICASONE PROPIONATE [Concomitant]
     Dosage: 50 MCG
     Dates: start: 20111122
  16. ASTEPRO [Concomitant]
     Dosage: 205.5 MCG
     Dates: start: 20111122
  17. DROSPIRENONE AND ETHINYL ESTRADIOL [Suspect]
     Indication: PREMENSTRUAL SYNDROME
  18. THYROID TAB [Concomitant]
     Dosage: 15 MG, UNK
     Dates: start: 20111122
  19. VICODIN [Concomitant]
  20. LEVOFLOXACIN [Concomitant]
  21. DROSPIRENONE AND ETHINYL ESTRADIOL [Suspect]
     Indication: PREMENSTRUAL SYNDROME
  22. AMOX TR +#8211; POTASSIUM [Concomitant]
     Dosage: 875 -125 MG
     Dates: start: 20111105
  23. FLONASE [Concomitant]
  24. GUAIFENESIN [Concomitant]
  25. ALBUTEROL [Concomitant]
  26. YAZ [Suspect]
     Indication: CONTRACEPTION

REACTIONS (4)
  - INJURY [None]
  - DEEP VEIN THROMBOSIS [None]
  - PULMONARY EMBOLISM [None]
  - PAIN [None]
